FAERS Safety Report 5504883-3 (Version None)
Quarter: 2007Q4

REPORT INFORMATION
  Report Type: 
  Country: None (occurrence: None)
  Receive Date: 20071031
  Receipt Date: 20071018
  Transmission Date: 20080405
  Serious: Yes (Hospitalization, Disabling)
  Sender: FDA-Public Use
  Company Number: 002#4#2007-00259

PATIENT
  Age: 74 Year
  Sex: Female
  Weight: 55.3388 kg

DRUGS (8)
  1. REGLAN [Suspect]
     Indication: IMPAIRED GASTRIC EMPTYING
     Dosage: , ORAL
     Route: 048
     Dates: start: 20070401, end: 20070907
  2. HYDROCHLOROTHIAZIDE [Concomitant]
  3. NORVASC [Concomitant]
  4. SYNTHROID [Concomitant]
  5. PEPCID [Concomitant]
  6. PRAVACHOL [Concomitant]
  7. BENICAR [Concomitant]
  8. UNSPECIFIED HORMONE REPLACEMETN THERAPY [Concomitant]

REACTIONS (12)
  - BLOOD POTASSIUM DECREASED [None]
  - BLOOD SODIUM DECREASED [None]
  - DRY EYE [None]
  - DRY MOUTH [None]
  - EATING DISORDER [None]
  - FALL [None]
  - GAIT DISTURBANCE [None]
  - HYPOTONIA [None]
  - INSOMNIA [None]
  - MALNUTRITION [None]
  - NERVOUSNESS [None]
  - WEIGHT DECREASED [None]
